FAERS Safety Report 11861015 (Version 5)
Quarter: 2016Q2

REPORT INFORMATION
  Report Type: Spontaneous
  Country: US (occurrence: US)
  Receive Date: 20151222
  Receipt Date: 20160511
  Transmission Date: 20160815
  Serious: No
  Sender: FDA-Public Use
  Company Number: US-PFIZER INC-2015450967

PATIENT
  Age: 36 Year
  Sex: Female
  Weight: 146.51 kg

DRUGS (4)
  1. LYRICA [Suspect]
     Active Substance: PREGABALIN
     Indication: BURNING SENSATION
  2. LYRICA [Suspect]
     Active Substance: PREGABALIN
     Indication: NEUROPATHY PERIPHERAL
  3. LYRICA [Suspect]
     Active Substance: PREGABALIN
     Indication: NEURALGIA
  4. LYRICA [Suspect]
     Active Substance: PREGABALIN
     Indication: FIBROMYALGIA
     Dosage: 200 MG, 3X/DAY
     Route: 048

REACTIONS (10)
  - Drug withdrawal syndrome [Unknown]
  - Headache [Unknown]
  - Hyperhidrosis [Unknown]
  - Activities of daily living impaired [Unknown]
  - Insomnia [Unknown]
  - Anxiety [Unknown]
  - Hot flush [Unknown]
  - Nausea [Unknown]
  - Pain [Unknown]
  - Neuralgia [Unknown]
